FAERS Safety Report 6092789-3 (Version None)
Quarter: 2009Q1

REPORT INFORMATION
  Report Type: 
  Country: None (occurrence: None)
  Receive Date: 20090225
  Receipt Date: 20090218
  Transmission Date: 20090719
  Serious: Yes (Hospitalization)
  Sender: FDA-Public Use
  Company Number: JP-ABBOTT-08P-087-0467813-00

PATIENT
  Sex: Female
  Weight: 50.9 kg

DRUGS (10)
  1. HUMIRA [Suspect]
     Indication: RHEUMATOID ARTHRITIS
     Route: 058
     Dates: start: 20080711, end: 20080725
  2. HUMIRA [Suspect]
     Dates: start: 20080829
  3. BENIDIPINE HYDROCHLORIDE [Concomitant]
     Indication: HYPERTENSION
     Route: 048
     Dates: start: 20080129
  4. CANDESARTAN CILEXETIL [Concomitant]
     Indication: HYPERTENSION
     Route: 048
     Dates: start: 20080129
  5. EPINASTINE HYDROCHLORIDE [Concomitant]
     Indication: RHINITIS ALLERGIC
     Route: 048
     Dates: start: 20061114, end: 20080727
  6. MENATETRENONE [Concomitant]
     Indication: OSTEOPOROSIS
     Dosage: 30 MG DAILY
     Route: 048
     Dates: start: 20061114, end: 20080727
  7. MELOXICAM [Concomitant]
     Indication: RHEUMATOID ARTHRITIS
     Route: 048
     Dates: start: 20050215, end: 20080727
  8. DIGESTIVE ENZYME PREPARATIONS [Concomitant]
     Indication: DYSPEPSIA
     Dosage: 3 GRAMS DAILY
     Route: 048
     Dates: start: 20070912
  9. PREDNISOLONE [Concomitant]
     Indication: RHEUMATOID ARTHRITIS
     Dosage: 5 MG DAILY
     Route: 048
     Dates: start: 20010901
  10. ALENDRONATE SODIUM [Concomitant]
     Indication: OSTEOPOROSIS
     Route: 048
     Dates: start: 20071016

REACTIONS (5)
  - BRONCHITIS [None]
  - COLITIS ISCHAEMIC [None]
  - CONSTIPATION [None]
  - HERPES ZOSTER [None]
  - TENSION HEADACHE [None]
